FAERS Safety Report 10348837 (Version 1)
Quarter: 2014Q3

REPORT INFORMATION
  Report Type: Spontaneous
  Country: NL (occurrence: None)
  Receive Date: 20140725
  Receipt Date: 20140725
  Transmission Date: 20150326
  Serious: Yes (Other)
  Sender: FDA-Public Use
  Company Number: VAL_03241_2014

PATIENT
  Age: 42 Year
  Sex: Female

DRUGS (3)
  1. DOXAZOSIN [Suspect]
     Active Substance: DOXAZOSIN\DOXAZOSIN MESYLATE
     Indication: HYPERTENSION
     Dosage: DF
  2. METOPROLOL (METOPROLOL - METOPROLOL TARTRATE) [Suspect]
     Active Substance: METOPROLOL
     Indication: HYPERTENSION
     Dosage: DF
  3. LOSARTAN (LOSARTAN) [Suspect]
     Active Substance: LOSARTAN
     Indication: HYPERTENSION
     Dosage: DF

REACTIONS (1)
  - Hypertension [None]
